FAERS Safety Report 19364595 (Version 1)
Quarter: 2021Q2

REPORT INFORMATION
  Report Type: Spontaneous
  Country: US (occurrence: US)
  Receive Date: 20210602
  Receipt Date: 20210602
  Transmission Date: 20210717
  Serious: Yes (Other)
  Sender: FDA-Public Use
  Company Number: None

PATIENT
  Sex: Female

DRUGS (2)
  1. TIMOLOL. [Suspect]
     Active Substance: TIMOLOL
  2. DORZOLAMIDE?TIMOLOL [Suspect]
     Active Substance: DORZOLAMIDE\TIMOLOL

REACTIONS (1)
  - Hypersensitivity [None]
